FAERS Safety Report 8117153-4 (Version None)
Quarter: 2012Q1

REPORT INFORMATION
  Report Type: 
  Country: None (occurrence: None)
  Receive Date: 20120206
  Receipt Date: 20120201
  Transmission Date: 20120608
  Serious: Yes (Death)
  Sender: FDA-Public Use
  Company Number: JP-VERTEX PHARMACEUTICALS INC.-AE-2012-001651

PATIENT
  Age: 64 Year
  Sex: Male

DRUGS (5)
  1. PEGINTERFERON ALFA-2A [Concomitant]
     Indication: HEPATITIS C
     Route: 058
     Dates: start: 20120106
  2. REBETOL [Concomitant]
     Route: 048
     Dates: start: 20120120
  3. TELAVIC (TELAPREVIR) [Suspect]
     Indication: HEPATITIS C
     Route: 048
     Dates: start: 20120106, end: 20120119
  4. TELAVIC (TELAPREVIR) [Suspect]
     Route: 048
     Dates: start: 20120120
  5. REBETOL [Concomitant]
     Indication: HEPATITIS C
     Route: 048
     Dates: start: 20120106, end: 20120119

REACTIONS (2)
  - HAEMOGLOBIN DECREASED [None]
  - DEATH [None]
